FAERS Safety Report 7059820-X (Version None)
Quarter: 2010Q4

REPORT INFORMATION
  Report Type: 
  Country: None (occurrence: None)
  Receive Date: 20101025
  Receipt Date: 20101013
  Transmission Date: 20110411
  Serious: Yes (Other)
  Sender: FDA-Public Use
  Company Number: US-PFIZER INC-2010090491

PATIENT
  Sex: Female
  Weight: 112.03 kg

DRUGS (9)
  1. LYRICA [Suspect]
     Indication: FIBROMYALGIA
     Dosage: UNK
  2. GABAPENTIN [Suspect]
     Indication: FIBROMYALGIA
     Dosage: UNK
     Dates: start: 20071130
  3. GABAPENTIN [Suspect]
     Dosage: UNIT DOSE: 100;
     Dates: start: 20071130
  4. ATENOLOL [Concomitant]
     Dosage: UNK
  5. ZANTAC [Concomitant]
     Dosage: UNK
  6. ARMOUR THYROID [Concomitant]
     Dosage: UNK
  7. ACETYLSALICYLIC ACID [Concomitant]
     Dosage: UNK
  8. MELOXICAM [Concomitant]
     Dosage: UNK
  9. DYAZIDE [Concomitant]
     Dosage: UNK

REACTIONS (11)
  - BALANCE DISORDER [None]
  - CIRCUMSTANCE OR INFORMATION CAPABLE OF LEADING TO MEDICATION ERROR [None]
  - DYSSTASIA [None]
  - FLUID RETENTION [None]
  - HEADACHE [None]
  - HYPERHIDROSIS [None]
  - MALAISE [None]
  - NECK PAIN [None]
  - OEDEMA PERIPHERAL [None]
  - PALPITATIONS [None]
  - VISION BLURRED [None]
